FAERS Safety Report 26077440 (Version 1)
Quarter: 2025Q4

REPORT INFORMATION
  Report Type: Spontaneous
  Country: US (occurrence: US)
  Receive Date: 20251121
  Receipt Date: 20251121
  Transmission Date: 20260117
  Serious: No
  Sender: NOVO NORDISK
  Company Number: US-NOVOPROD-1414842

PATIENT
  Sex: Male

DRUGS (1)
  1. TRESIBA [Suspect]
     Active Substance: INSULIN DEGLUDEC
     Indication: Diabetes mellitus
     Dosage: 24 IU, QD
     Route: 058

REACTIONS (5)
  - Memory impairment [Not Recovered/Not Resolved]
  - Condition aggravated [Not Recovered/Not Resolved]
  - Carpal tunnel syndrome [Not Recovered/Not Resolved]
  - Diabetic neuropathy [Not Recovered/Not Resolved]
  - Wrong technique in product usage process [Unknown]
